FAERS Safety Report 4555724-2 (Version None)
Quarter: 2005Q1

REPORT INFORMATION
  Report Type: 
  Country: None (occurrence: None)
  Receive Date: 20050112
  Receipt Date: 20040602
  Transmission Date: 20050727
  Serious: Yes (Hospitalization, Other)
  Sender: FDA-Public Use
  Company Number: 200418155BWH

PATIENT
  Age: 61 Year
  Sex: Male

DRUGS (13)
  1. CIPRO [Suspect]
     Indication: ESCHERICHIA URINARY TRACT INFECTION
     Dosage: ORAL
     Route: 048
     Dates: start: 20040426, end: 20040430
  2. IL13-PE38QR (STUDY DRUG)  (UNCODEABLE ^INVESTIGATIONAL DRUG^) [Suspect]
     Indication: GLIOBLASTOMA MULTIFORME
     Dates: start: 20040420, end: 20040424
  3. DILANTIN [Suspect]
  4. BACTRIM [Suspect]
  5. DECADRON [Concomitant]
  6. MIRALAX [Concomitant]
  7. CALCIUM SUPPLEMENTS [Concomitant]
  8. NYSTATIN [Concomitant]
  9. DEPAKOTE [Concomitant]
  10. DILANTIN [Concomitant]
  11. PREVACID [Concomitant]
  12. PYRIDIUM [Concomitant]
  13. BACTRIM [Concomitant]

REACTIONS (8)
  - CONSTIPATION [None]
  - DYSPHAGIA [None]
  - EYE SWELLING [None]
  - HYPONATRAEMIA [None]
  - PALLOR [None]
  - RASH MACULO-PAPULAR [None]
  - SWELLING FACE [None]
  - URTICARIA [None]
